FAERS Safety Report 8521476-4 (Version None)
Quarter: 2012Q3

REPORT INFORMATION
  Report Type: 
  Country: None (occurrence: None)
  Receive Date: 20120719
  Receipt Date: 20120710
  Transmission Date: 20120928
  Serious: Yes (Hospitalization, Other)
  Sender: FDA-Public Use
  Company Number: FR-ASTRAZENECA-2012SE47800

PATIENT
  Age: 31422 Day
  Sex: Male

DRUGS (21)
  1. ACETAMINOPHEN [Concomitant]
  2. COZAAR [Concomitant]
  3. ALLOPURINOL [Concomitant]
  4. SODIUM CHLORIDE [Concomitant]
  5. GAVISCON [Concomitant]
  6. NITROGLYCERIN [Concomitant]
  7. TOPLEXIL [Concomitant]
     Route: 048
     Dates: start: 20120114
  8. PREVISCAN [Interacting]
     Route: 048
  9. BISOPROLOL FUMARATE [Concomitant]
  10. LASIX [Concomitant]
  11. PRAVASTATIN [Concomitant]
  12. CLARITIN [Concomitant]
  13. TIORFAN [Concomitant]
  14. PANTOPRAZOLE SODIUM [Concomitant]
  15. ALFUZOSIN HYDROCHLORIDE [Concomitant]
  16. VOLTAREN [Concomitant]
  17. SYMBICORT [Suspect]
     Indication: COUGH
     Route: 055
     Dates: start: 20120114
  18. PREDNISOLONE [Interacting]
     Indication: COUGH
     Route: 048
     Dates: start: 20120114
  19. POTASSIUM CHLORIDE [Concomitant]
  20. MONICOR LP [Concomitant]
  21. NEORECORMON [Concomitant]

REACTIONS (5)
  - INTERNATIONAL NORMALISED RATIO INCREASED [None]
  - HAEMOPTYSIS [None]
  - INFLAMMATION [None]
  - INTERSTITIAL LUNG DISEASE [None]
  - DRUG INTERACTION [None]
